FAERS Safety Report 9783768 (Version 1)
Quarter: 2013Q4

REPORT INFORMATION
  Report Type: Spontaneous
  Country: DE (occurrence: None)
  Receive Date: 20131223
  Receipt Date: 20131223
  Transmission Date: 20140711
  Serious: Yes (Hospitalization, Other)
  Sender: FDA-Public Use
  Company Number: AUR-APL-2013-09911

PATIENT
  Age: 49 Year
  Sex: Male

DRUGS (11)
  1. RAMIPRIL (RAMIPRIL) [Suspect]
     Indication: PRODUCT USED FOR UNKNOWN INDICATION
     Dosage: 10 MG, 1D
     Route: 048
     Dates: start: 2010
  2. TRILEPTAL (OXCARBAZEPINE) [Suspect]
     Indication: PRODUCT USED FOR UNKNOWN INDICATION
     Dosage: 1200 MG, 1 D
     Route: 048
     Dates: start: 2009
  3. PANTOZOL [Suspect]
     Indication: PRODUCT USED FOR UNKNOWN INDICATION
     Dosage: 80 MG, 1 D
     Route: 048
  4. NORTRILEN [Concomitant]
  5. LYRICA (PREGABALIN) [Concomitant]
  6. BELOC ZOK (METOPROLOL SUCCINATE) [Concomitant]
  7. AMLODIPINE (AMLODIPINE) [Concomitant]
  8. ASS (ACETYLSALICYLIC ACID) [Concomitant]
  9. NOVALGIN (NOVO-PETRIN) [Concomitant]
  10. PARACETAMOL (PARACETAMOL) [Concomitant]
  11. KREON (PANCREATIN) [Concomitant]

REACTIONS (9)
  - Hyponatraemia [None]
  - Renal failure [None]
  - Multi-organ failure [None]
  - Sepsis [None]
  - Acute respiratory distress syndrome [None]
  - Pneumonia [None]
  - Pancreatitis [None]
  - Delirium [None]
  - Grand mal convulsion [None]
